FAERS Safety Report 8884594 (Version 2)
Quarter: 2012Q4

REPORT INFORMATION
  Report Type: 
  Country: US (occurrence: US)
  Receive Date: 20121102
  Receipt Date: 20121112
  Transmission Date: 20130627
  Serious: Yes (Other)
  Sender: FDA-Public Use
  Company Number: US-PFIZER INC-2012272835

PATIENT
  Age: 63 Year
  Sex: Female
  Weight: 47.62 kg

DRUGS (10)
  1. NEURONTIN [Suspect]
     Dosage: UNK
  2. GABAPENTIN [Suspect]
     Indication: DIABETIC NEUROPATHY
     Dosage: 300 mg, 3x/day
     Route: 048
     Dates: start: 201210, end: 201210
  3. GABAPENTIN [Suspect]
     Dosage: 300 mg, 2x/day
     Route: 048
     Dates: start: 201210, end: 201210
  4. GABAPENTIN [Suspect]
     Dosage: 300 mg, 2x/day
     Route: 048
     Dates: start: 20121101
  5. AMARYL [Concomitant]
     Indication: DIABETES
     Dosage: UNK
     Route: 048
  6. METFORMIN [Concomitant]
     Indication: DIABETES
     Dosage: UNK
     Route: 048
  7. CELEXA [Concomitant]
     Indication: DEPRESSION
     Dosage: UNK
  8. METOPROLOL [Concomitant]
     Indication: BLOOD PRESSURE HIGH
     Dosage: UNK
  9. LISINOPRIL [Concomitant]
     Indication: BLOOD PRESSURE HIGH
     Dosage: UNK
  10. CALCIUM [Concomitant]
     Dosage: UNK

REACTIONS (8)
  - Multiple fractures [Unknown]
  - Fall [Unknown]
  - Cataract [Unknown]
  - Vitamin D decreased [Unknown]
  - Dyskinesia [Not Recovered/Not Resolved]
  - Pain [Unknown]
  - Constipation [Not Recovered/Not Resolved]
  - Incorrect dose administered [Unknown]
